FAERS Safety Report 5914848-5 (Version None)
Quarter: 2008Q4

REPORT INFORMATION
  Report Type: 
  Country: None (occurrence: None)
  Receive Date: 20081010
  Receipt Date: 20080930
  Transmission Date: 20090506
  Serious: Yes (Other)
  Sender: FDA-Public Use
  Company Number: PHEH2008US08723

PATIENT

DRUGS (1)
  1. RITALIN LA [Suspect]

REACTIONS (1)
  - GLAUCOMA [None]
